FAERS Safety Report 6261585-6 (Version None)
Quarter: 2009Q3

REPORT INFORMATION
  Report Type: 
  Country: None (occurrence: None)
  Receive Date: 20090709
  Receipt Date: 20090324
  Transmission Date: 20100115
  Serious: No
  Sender: FDA-Public Use
  Company Number: US-BAYER-200916533NA

PATIENT
  Sex: Female

DRUGS (2)
  1. OCELLA [Suspect]
     Indication: ALOPECIA
     Route: 048
  2. YASMIN [Suspect]
     Indication: ALOPECIA
     Route: 048

REACTIONS (1)
  - ADVERSE EVENT [None]
